FAERS Safety Report 8623926-1 (Version None)
Quarter: 2012Q3

REPORT INFORMATION
  Report Type: 
  Country: None (occurrence: None)
  Receive Date: 20120827
  Receipt Date: 20120822
  Transmission Date: 20120928
  Serious: Yes (Other)
  Sender: FDA-Public Use
  Company Number: PHHY2012BE049505

PATIENT
  Sex: Male

DRUGS (14)
  1. CARVEDILOL [Concomitant]
  2. SINTROM [Concomitant]
  3. BUMETANIDE [Concomitant]
  4. DUOVENT [Concomitant]
  5. ONBREZ [Suspect]
     Indication: CHRONIC OBSTRUCTIVE PULMONARY DISEASE
     Dosage: 150 UG, UNK
     Dates: start: 20120129, end: 20120217
  6. ONBREZ [Suspect]
     Dosage: 150 UG, UNK
     Dates: start: 20120606
  7. ATACAND [Concomitant]
     Dosage: 16 MG, BID
  8. PROFLOX /BEL/ [Concomitant]
     Dosage: 400 MG, UNK
     Dates: start: 20120207, end: 20120227
  9. ONBREZ [Suspect]
     Dosage: 300 UG, UNK
     Dates: start: 20120218, end: 20120310
  10. BETASERC [Concomitant]
     Dosage: 16 MG, BID
  11. CARVEDILOL [Concomitant]
     Dosage: 12.5 MG, BID
  12. PIRACETAM [Concomitant]
     Dosage: 12 MG, BID
  13. SYMBICORT [Concomitant]
  14. AUGMENTIN '500' [Concomitant]
     Dosage: 875 MG, BID
     Dates: start: 20120124, end: 20120206

REACTIONS (4)
  - RETINAL DISORDER [None]
  - BLINDNESS [None]
  - VISUAL IMPAIRMENT [None]
  - DRUG INEFFECTIVE [None]
